FAERS Safety Report 10751534 (Version 1)
Quarter: 2015Q1

REPORT INFORMATION
  Report Type: Spontaneous
  Country: US (occurrence: US)
  Receive Date: 20150130
  Receipt Date: 20150130
  Transmission Date: 20150721
  Serious: Yes (Hospitalization, Other)
  Sender: FDA-Public Use
  Company Number: US-PFIZER INC-2015033209

PATIENT
  Age: 27 Year
  Sex: Male

DRUGS (2)
  1. PROPANOLOL HCL [Suspect]
     Active Substance: PROPRANOLOL HYDROCHLORIDE
     Dosage: UNK
     Route: 048
  2. METHIMAZOLE. [Suspect]
     Active Substance: METHIMAZOLE
     Dosage: UNK

REACTIONS (3)
  - Treatment noncompliance [Unknown]
  - Liver function test abnormal [Recovering/Resolving]
  - Hypoglycaemia [Recovered/Resolved]
